FAERS Safety Report 23048731 (Version 1)
Quarter: 2023Q4

REPORT INFORMATION
  Report Type: Report from Study
  Country: US (occurrence: US)
  Receive Date: 20231010
  Receipt Date: 20231010
  Transmission Date: 20240109
  Serious: Yes (Other)
  Sender: FDA-Public Use
  Company Number: US-002147023-NVSC2023US214632

PATIENT
  Sex: Female
  Weight: 76.2 kg

DRUGS (2)
  1. TRIAMCINOLONE [Suspect]
     Active Substance: TRIAMCINOLONE
     Indication: Psoriasis
     Dosage: UNK
     Route: 065
  2. TRIAMCINOLONE [Suspect]
     Active Substance: TRIAMCINOLONE
     Indication: Psoriatic arthropathy

REACTIONS (5)
  - Rheumatoid arthritis [Unknown]
  - Immunosuppression [Unknown]
  - Therapeutic response decreased [Unknown]
  - Rash [Recovering/Resolving]
  - Pruritus [Unknown]
